FAERS Safety Report 17408290 (Version 1)
Quarter: 2020Q1

REPORT INFORMATION
  Report Type: Spontaneous
  Country: US (occurrence: US)
  Receive Date: 20200212
  Receipt Date: 20200212
  Transmission Date: 20200409
  Serious: No
  Sender: FDA-Public Use
  Company Number: US-GLAXOSMITHKLINE-US2020AMR023312

PATIENT
  Sex: Female

DRUGS (2)
  1. STIVARGA [Suspect]
     Active Substance: REGORAFENIB
     Indication: PRODUCT USED FOR UNKNOWN INDICATION
     Dosage: UNK
  2. VARUBI [Suspect]
     Active Substance: ROLAPITANT
     Indication: PRODUCT USED FOR UNKNOWN INDICATION
     Dosage: 180 MG, Z (EVERY 2 WEEKS)
     Dates: start: 20170320

REACTIONS (1)
  - Computerised tomogram abnormal [Unknown]
